FAERS Safety Report 7880982-6 (Version None)
Quarter: 2011Q4

REPORT INFORMATION
  Report Type: 
  Country: None (occurrence: None)
  Receive Date: 20111101
  Receipt Date: 20111027
  Transmission Date: 20120403
  Serious: Yes (Other)
  Sender: FDA-Public Use
  Company Number: NL-MERCK-1110NLD00012

PATIENT
  Age: 65 Year
  Sex: Female
  Weight: 85 kg

DRUGS (1)
  1. FOSAMAX PLUS D [Suspect]
     Indication: OSTEOPOROSIS
     Route: 048
     Dates: start: 20070615, end: 20111008

REACTIONS (10)
  - SKIN EXFOLIATION [None]
  - PRURITUS [None]
  - COUGH [None]
  - PHOTOSENSITIVITY REACTION [None]
  - PALMAR ERYTHEMA [None]
  - INCREASED TENDENCY TO BRUISE [None]
  - ERYTHEMA [None]
  - BONE PAIN [None]
  - SKIN HYPERTROPHY [None]
  - SKIN CHAPPED [None]
